FAERS Safety Report 20563494 (Version 1)
Quarter: 2022Q1

REPORT INFORMATION
  Report Type: Spontaneous
  Country: US (occurrence: US)
  Receive Date: 20220308
  Receipt Date: 20220308
  Transmission Date: 20220424
  Serious: Yes (Other)
  Sender: FDA-Public Use
  Company Number: US-Emergent Biosolutions-22000038

PATIENT

DRUGS (2)
  1. NARCAN [Suspect]
     Active Substance: NALOXONE HYDROCHLORIDE
     Indication: Overdose
     Dosage: 4 MILLIGRAM, SIX TIMES
     Route: 045
  2. FENTANYL [Concomitant]
     Active Substance: FENTANYL
     Route: 065

REACTIONS (1)
  - Drug ineffective [Unknown]
